FAERS Safety Report 6761360-X (Version None)
Quarter: 2010Q2

REPORT INFORMATION
  Report Type: 
  Country: None (occurrence: None)
  Receive Date: 20100607
  Receipt Date: 20100521
  Transmission Date: 20101027
  Serious: Yes (Hospitalization)
  Sender: FDA-Public Use
  Company Number: 2010002081

PATIENT
  Age: 69 Year
  Sex: Female

DRUGS (9)
  1. ERLOTINIB (ERLOTINIB) (TABLET) (ERLOTINIB) [Suspect]
     Indication: LUNG NEOPLASM MALIGNANT
     Dosage: 150 MG, QD, ORAL
     Route: 048
     Dates: start: 20100419
  2. SOTALOL HCL [Concomitant]
  3. SERTRALINE HCL [Concomitant]
  4. SIMVASTATIN [Concomitant]
  5. OMEPRAZOLE [Concomitant]
  6. RAMIPRIL [Concomitant]
  7. ALPRAZOLAM [Concomitant]
  8. BUDESONIDE [Concomitant]
  9. FORMOTEROL (FORMOTEROL) [Concomitant]

REACTIONS (2)
  - ATRIAL FIBRILLATION [None]
  - RESPIRATORY TRACT HAEMORRHAGE [None]
